FAERS Safety Report 25163928 (Version 1)
Quarter: 2025Q2

REPORT INFORMATION
  Report Type: Spontaneous
  Country: CN (occurrence: CN)
  Receive Date: 20250405
  Receipt Date: 20250405
  Transmission Date: 20250717
  Serious: Yes (Hospitalization)
  Sender: NOVITIUM PHARMA
  Company Number: CN-NOVITIUMPHARMA-2025CNNVP00816

PATIENT
  Age: 29 Year
  Sex: Female

DRUGS (9)
  1. PREDNISONE [Suspect]
     Active Substance: PREDNISONE
     Indication: Immune thrombocytopenia
  2. PREDNISONE [Suspect]
     Active Substance: PREDNISONE
  3. DEXAMETHASONE [Suspect]
     Active Substance: DEXAMETHASONE
     Indication: Immune thrombocytopenia
     Route: 048
     Dates: start: 2021
  4. DEXAMETHASONE [Suspect]
     Active Substance: DEXAMETHASONE
  5. Immunoglobulin [Concomitant]
     Indication: Immune thrombocytopenia
     Route: 042
  6. Hetrombopag [Concomitant]
     Route: 048
  7. Hetrombopag [Concomitant]
     Route: 048
  8. Hetrombopag [Concomitant]
     Route: 048
  9. OXYTOCIN [Concomitant]
     Active Substance: OXYTOCIN
     Indication: Labour induction

REACTIONS (3)
  - Candida infection [Unknown]
  - Drug ineffective [Unknown]
  - Exposure during pregnancy [Unknown]
